FAERS Safety Report 7064875-2 (Version None)
Quarter: 2010Q4

REPORT INFORMATION
  Report Type: 
  Country: None (occurrence: None)
  Receive Date: 20101027
  Receipt Date: 19920326
  Transmission Date: 20110411
  Serious: Yes (Death, Life-Threatening)
  Sender: FDA-Public Use
  Company Number: CH-ROCHE-920100176001

PATIENT
  Sex: Male
  Weight: 9.6 kg

DRUGS (1)
  1. ROFERON-A [Suspect]
     Route: 042

REACTIONS (11)
  - BLOOD IMMUNOGLOBULIN M INCREASED [None]
  - DRUG EFFECT DECREASED [None]
  - HUMAN HERPESVIRUS 6 INFECTION [None]
  - INTERSTITIAL LUNG DISEASE [None]
  - MULTI-ORGAN FAILURE [None]
  - NO THERAPEUTIC RESPONSE [None]
  - PSEUDOMONAL SEPSIS [None]
  - PULMONARY ARTERIAL HYPERTENSION [None]
  - PULMONARY EMBOLISM [None]
  - RESPIRATORY FAILURE [None]
  - RIGHT VENTRICULAR FAILURE [None]
